FAERS Safety Report 9988450 (Version 1)
Quarter: 2014Q1

REPORT INFORMATION
  Report Type: Report from Study
  Country: US (occurrence: US)
  Receive Date: 20140310
  Receipt Date: 20140310
  Transmission Date: 20141002
  Serious: Yes (Other)
  Sender: FDA-Public Use
  Company Number: US-ROCHE-1358092

PATIENT
  Sex: 0

DRUGS (8)
  1. BEVACIZUMAB [Suspect]
     Indication: GASTROINTESTINAL CARCINOMA
     Dosage: D1
     Route: 065
  2. SORAFENIB [Suspect]
     Indication: GASTROINTESTINAL CARCINOMA
     Dosage: DAYS 3-7, 10-14
     Route: 048
  3. SORAFENIB [Suspect]
     Dosage: DAYS 3-6, 10-13
     Route: 048
  4. SORAFENIB [Suspect]
     Dosage: DAYS 3-7, 10-14.
     Route: 048
  5. IRINOTECAN [Suspect]
     Indication: GASTROINTESTINAL CARCINOMA
     Dosage: D1
     Route: 065
  6. LEUCOVORIN [Suspect]
     Indication: GASTROINTESTINAL CARCINOMA
     Dosage: D1
     Route: 065
  7. 5-FLUOROURACIL [Suspect]
     Indication: GASTROINTESTINAL CARCINOMA
     Dosage: D1, BOLUS
     Route: 065
  8. 5-FLUOROURACIL [Suspect]
     Dosage: D1-2
     Route: 065

REACTIONS (3)
  - Hypophosphataemia [Unknown]
  - Dehydration [Unknown]
  - Diarrhoea [Unknown]
